FAERS Safety Report 7318783-X (Version None)
Quarter: 2011Q1

REPORT INFORMATION
  Report Type: 
  Country: None (occurrence: None)
  Receive Date: 20110228
  Receipt Date: 20100518
  Transmission Date: 20110831
  Serious: No
  Sender: FDA-Public Use
  Company Number: A0860638A

PATIENT
  Age: 52 Year
  Sex: Female

DRUGS (4)
  1. METHYLPHENIDATE HCL [Concomitant]
  2. SUMATRIPTAN [Concomitant]
  3. SUMATRIPTAN SUCCINATE [Suspect]
     Dosage: 6MG AS REQUIRED
     Route: 065
  4. AVINZA [Concomitant]

REACTIONS (1)
  - DRUG INEFFECTIVE [None]
